FAERS Safety Report 24075342 (Version 2)
Quarter: 2024Q3

REPORT INFORMATION
  Report Type: Report from Study
  Country: GB (occurrence: GB)
  Receive Date: 20240710
  Receipt Date: 20240802
  Transmission Date: 20241017
  Serious: Yes (Hospitalization, Other)
  Sender: SANDOZ
  Company Number: GB-SANDOZ-SDZ2024GB034123

PATIENT
  Sex: Male

DRUGS (2)
  1. HYRIMOZ [Suspect]
     Active Substance: ADALIMUMAB-ADAZ
     Indication: Rheumatoid arthritis
     Dosage: 40 MG, Q2W  (40MG/0.8ML )
     Route: 058
  2. HYRIMOZ [Suspect]
     Active Substance: ADALIMUMAB-ADAZ
     Dosage: 40 MG, Q2W (40MG/0.4ML )
     Route: 058

REACTIONS (2)
  - COVID-19 [Unknown]
  - Pneumonia [Unknown]
